FAERS Safety Report 24100784 (Version 1)
Quarter: 2024Q3

REPORT INFORMATION
  Report Type: Spontaneous
  Country: CN (occurrence: CN)
  Receive Date: 20240717
  Receipt Date: 20240717
  Transmission Date: 20241017
  Serious: Yes (Other)
  Sender: BEIGENE
  Company Number: CN-BEIGENE-BGN-2024-010845

PATIENT

DRUGS (1)
  1. TISLELIZUMAB [Suspect]
     Active Substance: TISLELIZUMAB
     Indication: Nasopharyngeal cancer
     Dosage: 200 MILLIGRAM
     Route: 041
     Dates: start: 20240701

REACTIONS (9)
  - Face oedema [Recovering/Resolving]
  - Rash erythematous [Unknown]
  - Lip oedema [Unknown]
  - Oedema mouth [Unknown]
  - Listless [Unknown]
  - Pruritus [Unknown]
  - Dysarthria [Unknown]
  - Cough [Unknown]
  - Chest discomfort [Unknown]

NARRATIVE: CASE EVENT DATE: 20240701
